FAERS Safety Report 8786923 (Version 1)
Quarter: 2012Q4

REPORT INFORMATION
  Report Type: Report from Study
  Country: US (occurrence: US)
  Receive Date: 20120914
  Receipt Date: 20120914
  Transmission Date: 20130627
  Serious: No
  Sender: FDA-Public Use
  Company Number: US-VERTEX PHARMACEUTICAL INC.-AE-2012-011066

PATIENT
  Age: 47 None
  Sex: Male
  Weight: 109.9 kg

DRUGS (3)
  1. INCIVEK [Suspect]
     Indication: HEPATITIS C
     Route: 048
     Dates: start: 20120701
  2. PEGASYS [Concomitant]
     Indication: HEPATITIS C
     Route: 058
     Dates: start: 20120701
  3. RIBAVIRIN [Concomitant]
     Indication: HEPATITIS C
     Route: 048
     Dates: start: 20120701

REACTIONS (4)
  - Affect lability [Recovered/Resolved]
  - Pruritus generalised [Recovered/Resolved]
  - Anal pruritus [Not Recovered/Not Resolved]
  - Nausea [Recovered/Resolved]
